FAERS Safety Report 4997172-7 (Version None)
Quarter: 2006Q2

REPORT INFORMATION
  Report Type: 
  Country: None (occurrence: None)
  Receive Date: 20060505
  Receipt Date: 20060505
  Transmission Date: 20061013
  Serious: Yes (Hospitalization)
  Sender: FDA-Public Use
  Company Number: None

PATIENT
  Age: 46 Year
  Sex: Female
  Weight: 50 kg

DRUGS (2)
  1. FLUDARABINE [Suspect]
     Indication: ACUTE MYELOID LEUKAEMIA
     Dosage: 43 MG  DAILY  IV BOLUS
     Route: 040
     Dates: start: 20060318, end: 20060322
  2. FLUDARABINE [Suspect]
     Indication: BONE MARROW TRANSPLANT
     Dosage: 43 MG  DAILY  IV BOLUS
     Route: 040
     Dates: start: 20060318, end: 20060322

REACTIONS (3)
  - DEMYELINATION [None]
  - ENCEPHALOPATHY [None]
  - LOSS OF CONSCIOUSNESS [None]
